FAERS Safety Report 15785163 (Version 2)
Quarter: 2019Q1

REPORT INFORMATION
  Report Type: Spontaneous
  Country: US (occurrence: US)
  Receive Date: 20190103
  Receipt Date: 20190109
  Transmission Date: 20190417
  Serious: No
  Sender: FDA-Public Use
  Company Number: US-PFIZER INC-2018037374

PATIENT
  Age: 51 Year
  Sex: Male
  Weight: 86 kg

DRUGS (4)
  1. GABAPENTIN. [Suspect]
     Active Substance: GABAPENTIN
     Indication: PHANTOM PAIN
     Dosage: 2400 MG, 1X/DAY (TAKING 4 600 MG CAPSULES A DAY)
  2. GABAPENTIN. [Suspect]
     Active Substance: GABAPENTIN
     Dosage: 600 MG, 3X/DAY (1 TAB THREE TIME A DAY)
  3. GABAPENTIN. [Suspect]
     Active Substance: GABAPENTIN
     Indication: PHANTOM PAIN
     Dosage: 2400 MG, DAILY (1 TAB BID AND 2 TABS QHS/ GABAPENTIN 600MG BID AND 1200 MG QHS)
  4. GABAPENTIN. [Suspect]
     Active Substance: GABAPENTIN
     Dosage: 1200 MG, 1X/DAY (2 TABS EVERY BEDTIME)

REACTIONS (1)
  - Drug ineffective for unapproved indication [Unknown]
